FAERS Safety Report 13720007 (Version 2)
Quarter: 2017Q3

REPORT INFORMATION
  Report Type: Report from Study
  Country: None (occurrence: GB)
  Receive Date: 20170705
  Receipt Date: 20170922
  Transmission Date: 20171127
  Serious: Yes (Life-Threatening, Hospitalization)
  Sender: FDA-Public Use
  Company Number: GB-ABBVIE-17K-167-2028421-00

PATIENT
  Age: 57 Year
  Sex: Female
  Weight: 103.6 kg

DRUGS (1)
  1. HUMIRA [Suspect]
     Active Substance: ADALIMUMAB
     Indication: PSORIASIS
     Route: 058
     Dates: start: 20160120

REACTIONS (6)
  - Pyrexia [Unknown]
  - Confusional state [Unknown]
  - Intracranial aneurysm [Recovered/Resolved with Sequelae]
  - Haemorrhagic stroke [Unknown]
  - Memory impairment [Unknown]
  - Subarachnoid haemorrhage [Recovered/Resolved with Sequelae]

NARRATIVE: CASE EVENT DATE: 2016
